FAERS Safety Report 13544603 (Version 1)
Quarter: 2017Q2

REPORT INFORMATION
  Report Type: Spontaneous
  Country: US (occurrence: US)
  Receive Date: 20170515
  Receipt Date: 20170515
  Transmission Date: 20170830
  Serious: No
  Sender: FDA-Public Use
  Company Number: US-009507513-1705USA002861

PATIENT
  Age: 67 Year
  Sex: Female

DRUGS (2)
  1. BELSOMRA [Suspect]
     Active Substance: SUVOREXANT
     Dosage: UNK, EVERY NIGHT
     Route: 048
     Dates: start: 2017, end: 2017
  2. BELSOMRA [Suspect]
     Active Substance: SUVOREXANT
     Dosage: UNK, AS NEEDED
     Route: 048
     Dates: start: 2017, end: 2017

REACTIONS (2)
  - Sleep paralysis [Recovered/Resolved]
  - Movement disorder [Recovered/Resolved]

NARRATIVE: CASE EVENT DATE: 2017
